FAERS Safety Report 13593463 (Version 1)
Quarter: 2017Q2

REPORT INFORMATION
  Report Type: Spontaneous
  Country: IT (occurrence: IT)
  Receive Date: 20170530
  Receipt Date: 20170530
  Transmission Date: 20170830
  Serious: Yes (Other)
  Sender: FDA-Public Use
  Company Number: IT-MYLANLABS-2017M1031816

PATIENT

DRUGS (2)
  1. MACLADIN [Suspect]
     Active Substance: CLARITHROMYCIN
     Indication: OROPHARYNGEAL PAIN
     Dosage: UNK
     Dates: start: 20170519, end: 20170520
  2. DELTACORTENE [Concomitant]
     Active Substance: PREDNISONE
     Indication: PRODUCT USED FOR UNKNOWN INDICATION
     Dosage: 25 MG, UNK

REACTIONS (4)
  - Pruritus generalised [Unknown]
  - Hypotension [Unknown]
  - Angioedema [Unknown]
  - Tachycardia [Unknown]

NARRATIVE: CASE EVENT DATE: 20170520
